FAERS Safety Report 8951595 (Version 1)
Quarter: 2012Q4

REPORT INFORMATION
  Report Type: Report from Study
  Country: DE (occurrence: DE)
  Receive Date: 20121204
  Receipt Date: 20121204
  Transmission Date: 20130627
  Serious: Yes (Hospitalization)
  Sender: FDA-Public Use
  Company Number: DE-ROCHE-1163366

PATIENT
  Sex: Male
  Weight: 93 kg

DRUGS (1)
  1. RITUXIMAB [Suspect]
     Indication: RHEUMATOID ARTHRITIS
     Dosage: last administration of Rituximab proir to event on 28/Jun/2012
     Route: 042
     Dates: start: 20120614

REACTIONS (1)
  - Colitis [Recovered/Resolved]
